FAERS Safety Report 5514656-3 (Version None)
Quarter: 2007Q4

REPORT INFORMATION
  Report Type: 
  Country: None (occurrence: None)
  Receive Date: 20071113
  Receipt Date: 20071107
  Transmission Date: 20080405
  Serious: Yes (Other)
  Sender: FDA-Public Use
  Company Number: US-PFIZER INC-2007093811

PATIENT
  Age: 69 Year
  Sex: Male

DRUGS (2)
  1. VIAGRA [Suspect]
  2. VITAMIN CAP [Concomitant]

REACTIONS (3)
  - HYPOACUSIS [None]
  - ISCHAEMIA [None]
  - TINNITUS [None]
